FAERS Safety Report 19441541 (Version 5)
Quarter: 2024Q1

REPORT INFORMATION
  Report Type: Spontaneous
  Country: US (occurrence: US)
  Receive Date: 20210621
  Receipt Date: 20240318
  Transmission Date: 20240409
  Serious: Yes (Disabling, Other)
  Sender: FDA-Public Use
  Company Number: US-ORGANON-O2106USA001582

PATIENT
  Sex: Female

DRUGS (2)
  1. SINGULAIR [Suspect]
     Active Substance: MONTELUKAST SODIUM
     Indication: Asthma
     Dosage: UNK
     Route: 048
     Dates: start: 2010, end: 2015
  2. SINGULAIR [Suspect]
     Active Substance: MONTELUKAST SODIUM
     Indication: Hypersensitivity

REACTIONS (9)
  - Neuropsychological symptoms [Not Recovered/Not Resolved]
  - Major depression [Not Recovered/Not Resolved]
  - Bipolar II disorder [Unknown]
  - Suicidal ideation [Recovered/Resolved]
  - Agitation [Not Recovered/Not Resolved]
  - Migraine [Unknown]
  - Generalised anxiety disorder [Recovering/Resolving]
  - Panic disorder [Unknown]
  - Insomnia [Unknown]

NARRATIVE: CASE EVENT DATE: 20100101
